FAERS Safety Report 5115644-1 (Version None)
Quarter: 2006Q3

REPORT INFORMATION
  Report Type: 
  Country: None (occurrence: None)
  Receive Date: 20060927
  Receipt Date: 20060823
  Transmission Date: 20061208
  Serious: Yes (Disabling, Other)
  Sender: FDA-Public Use
  Company Number: AU-BRISTOL-MYERS SQUIBB COMPANY-13485560

PATIENT
  Age: 54 Year
  Sex: Male
  Weight: 92 kg

DRUGS (6)
  1. REYATAZ [Suspect]
     Indication: HIV INFECTION
     Dosage: THERAPY STOPPED ON 20-JUL-2006 AND RESTARTED ON 17-AUG-2006.
     Route: 048
     Dates: start: 20060227
  2. TENOFOVIR [Suspect]
  3. RITONAVIR [Concomitant]
     Indication: HIV INFECTION
     Route: 048
     Dates: start: 19960101, end: 20060720
  4. PRAVACHOL [Concomitant]
     Indication: BLOOD CHOLESTEROL INCREASED
     Route: 048
     Dates: start: 20060206
  5. CIALIS [Concomitant]
     Indication: ERECTILE DYSFUNCTION
     Route: 048
     Dates: start: 20030513
  6. TRITACE [Concomitant]
     Indication: HYPERTENSION
     Route: 048
     Dates: start: 20050611

REACTIONS (3)
  - ALANINE AMINOTRANSFERASE INCREASED [None]
  - ASPARTATE AMINOTRANSFERASE INCREASED [None]
  - HEPATITIS B [None]
